FAERS Safety Report 7949778-0 (Version None)
Quarter: 2011Q4

REPORT INFORMATION
  Report Type: 
  Country: None (occurrence: None)
  Receive Date: 20111130
  Receipt Date: 20111122
  Transmission Date: 20120403
  Serious: Yes (Hospitalization)
  Sender: FDA-Public Use
  Company Number: PHHY2011FR103336

PATIENT
  Sex: Female
  Weight: 92 kg

DRUGS (8)
  1. LEVOTHYROXINE SODIUM [Concomitant]
     Dosage: UNK UKN, UNK
  2. ASPIRIN [Concomitant]
     Dosage: UNK UKN, UNK
  3. FENOFIBRATE [Concomitant]
     Dosage: UNK UKN, UNK
  4. ZOLEDRONOC ACID [Suspect]
     Indication: OSTEOPOROTIC FRACTURE
     Dosage: UNK UKN, UNK
     Route: 042
     Dates: start: 20110715
  5. ENALAPRIL MALEATE AND HYDROCHLOROTHIAZIDE [Concomitant]
     Dosage: UNK UKN, UNK
  6. STRUCTUM [Concomitant]
     Dosage: UNK UKN, UNK
  7. ESOMEPRAZOLE [Concomitant]
     Dosage: UNK UKN, UNK
  8. ALLOPURINOL [Concomitant]
     Dosage: UNK UKN, UNK

REACTIONS (3)
  - TACHYCARDIA [None]
  - PALPITATIONS [None]
  - MALAISE [None]
